FAERS Safety Report 7275126-8 (Version None)
Quarter: 2011Q1

REPORT INFORMATION
  Report Type: 
  Country: None (occurrence: None)
  Receive Date: 20110204
  Receipt Date: 20110124
  Transmission Date: 20110831
  Serious: Yes (Hospitalization, Other)
  Sender: FDA-Public Use
  Company Number: PHHY2011JP05518

PATIENT
  Age: 29 Year
  Sex: Female

DRUGS (1)
  1. CARBAMAZEPINE [Suspect]
     Dosage: 400 MG/DAY

REACTIONS (10)
  - BLOOD IMMUNOGLOBULIN G DECREASED [None]
  - PNEUMONIA [None]
  - BLOOD IMMUNOGLOBULIN M DECREASED [None]
  - OPTIC NEURITIS [None]
  - PRURITUS [None]
  - NEUROMYELITIS OPTICA [None]
  - SKIN EXFOLIATION [None]
  - MYELITIS [None]
  - B-LYMPHOCYTE COUNT DECREASED [None]
  - HYPOGAMMAGLOBULINAEMIA [None]
